FAERS Safety Report 9011574 (Version 1)
Quarter: 2013Q1

REPORT INFORMATION
  Report Type: Spontaneous
  Country: AU (occurrence: AU)
  Receive Date: 20130108
  Receipt Date: 20130108
  Transmission Date: 20140127
  Serious: Yes (Hospitalization)
  Sender: FDA-Public Use
  Company Number: AU-B.I. PHARMACEUTICALS,INC./RIDGEFIELD-2013-AU-00006AU

PATIENT
  Age: 88 None
  Sex: Male

DRUGS (9)
  1. PRADAXA [Suspect]
     Indication: CEREBROVASCULAR ACCIDENT PROPHYLAXIS
     Dates: start: 201106
  2. PRADAXA [Suspect]
     Indication: ATRIAL FIBRILLATION
  3. SIMVASTATIN [Concomitant]
  4. GTN [Concomitant]
  5. PERINDOPRIL [Concomitant]
  6. CALCIUM [Concomitant]
  7. LACTULOSE [Concomitant]
  8. COLOXYL AND SENNA [Concomitant]
  9. FRUSEMIDE [Concomitant]

REACTIONS (8)
  - Heat stroke [Unknown]
  - Non-cardiogenic pulmonary oedema [Unknown]
  - Urinary tract obstruction [Unknown]
  - Multi-organ disorder [Unknown]
  - Haemorrhage [Unknown]
  - Urinary retention [Unknown]
  - Lung disorder [Unknown]
  - Prostatomegaly [Unknown]
